FAERS Safety Report 18178817 (Version 1)
Quarter: 2020Q3

REPORT INFORMATION
  Report Type: Spontaneous
  Country: DK (occurrence: DK)
  Receive Date: 20200820
  Receipt Date: 20200820
  Transmission Date: 20201103
  Serious: Yes (Other)
  Sender: FDA-Public Use
  Company Number: DK-JNJFOC-20200817527

PATIENT
  Age: 40 Year
  Sex: Male

DRUGS (2)
  1. SERENASE (HALOPERIDOL) [Suspect]
     Active Substance: HALOPERIDOL
     Indication: PSYCHOTIC DISORDER
     Dosage: STRENGTH: UNKNOWN; IN TOTAL
     Route: 065
     Dates: start: 20190119
  2. LYSANTIN [Concomitant]
     Active Substance: ORPHENADRINE HYDROCHLORIDE
     Indication: PSYCHOTIC DISORDER
     Dosage: STRENGHT: UNKNOWN; AS REQUIRED
     Dates: start: 201901

REACTIONS (11)
  - Palpitations [Recovered/Resolved]
  - Muscle rigidity [Recovered/Resolved]
  - Dystonia [Recovered/Resolved]
  - Speech disorder [Recovered/Resolved]
  - Decreased eye contact [Recovered/Resolved]
  - Dysphagia [Recovered/Resolved]
  - Heart rate increased [Recovered/Resolved]
  - Lethargy [Recovered/Resolved]
  - Body temperature increased [Recovered/Resolved]
  - Blood pressure increased [Recovered/Resolved]
  - Musculoskeletal stiffness [Recovered/Resolved]

NARRATIVE: CASE EVENT DATE: 20190119
